FAERS Safety Report 8008590-7 (Version None)
Quarter: 2011Q4

REPORT INFORMATION
  Report Type: 
  Country: None (occurrence: None)
  Receive Date: 20111227
  Receipt Date: 20111212
  Transmission Date: 20120403
  Serious: Yes (Hospitalization, Other)
  Sender: FDA-Public Use
  Company Number: CH-ROCHE-1010744

PATIENT
  Sex: Female
  Weight: 77 kg

DRUGS (8)
  1. NEBIVOLOL HCL [Concomitant]
     Indication: HYPERTENSION
  2. PEGINTERFERON ALFA-2A [Suspect]
     Indication: HEPATITIS C
     Dates: start: 20110720, end: 20111011
  3. COPEGUS [Suspect]
     Indication: HEPATITIS C
     Dates: start: 20110720, end: 20111011
  4. DEPAKENE [Concomitant]
     Indication: EPILEPSY
  5. LOSARTAN POTASSIUM [Concomitant]
     Indication: HYPERTENSION
  6. LERCANIDIPINE [Concomitant]
     Indication: HYPERTENSION
  7. EXCIPIAL U [Concomitant]
  8. SUN BATH PROTECTIVE TANNING LOTION [Concomitant]
     Indication: RASH

REACTIONS (4)
  - THROMBOCYTOPENIA [None]
  - HYPOTENSION [None]
  - ANAEMIA [None]
  - ASTHENIA [None]
